FAERS Safety Report 15395514 (Version 1)
Quarter: 2018Q3

REPORT INFORMATION
  Report Type: Spontaneous
  Country: US (occurrence: US)
  Receive Date: 20180918
  Receipt Date: 20180918
  Transmission Date: 20181010
  Serious: Yes (Hospitalization, Disabling, Other)
  Sender: FDA-Public Use
  Company Number: US-JNJFOC-20180906613

PATIENT
  Age: 64 Year
  Sex: Male

DRUGS (1)
  1. INVOKANA [Suspect]
     Active Substance: CANAGLIFLOZIN
     Indication: TYPE 2 DIABETES MELLITUS
     Route: 048
     Dates: start: 20140331

REACTIONS (5)
  - Diabetic ulcer [Unknown]
  - Osteomyelitis chronic [Unknown]
  - Cellulitis [Unknown]
  - Metatarsal excision [Unknown]
  - Foot amputation [Unknown]

NARRATIVE: CASE EVENT DATE: 20171026
